FAERS Safety Report 14425597 (Version 2)
Quarter: 2018Q1

REPORT INFORMATION
  Report Type: Spontaneous
  Country: ZA (occurrence: ZA)
  Receive Date: 20180123
  Receipt Date: 20180312
  Transmission Date: 20180509
  Serious: Yes (Hospitalization)
  Sender: FDA-Public Use
  Company Number: ZA-SA-2018SA013390

PATIENT
  Age: 32 Year
  Sex: Male
  Weight: 120 kg

DRUGS (4)
  1. TRAMADOL. [Concomitant]
     Active Substance: TRAMADOL
     Indication: PAIN
     Route: 048
     Dates: start: 20171218
  2. VITAMIN C [Concomitant]
     Active Substance: ASCORBIC ACID
     Indication: PROMOTION OF WOUND HEALING
     Route: 048
     Dates: start: 20171215
  3. PARACETAMOL [Concomitant]
     Active Substance: ACETAMINOPHEN
     Indication: PAIN
     Route: 048
     Dates: start: 20171218
  4. CLEXANE [Suspect]
     Active Substance: ENOXAPARIN SODIUM
     Indication: PROPHYLAXIS
     Route: 058
     Dates: start: 20171214, end: 20171230

REACTIONS (3)
  - Jaundice cholestatic [Recovered/Resolved]
  - Bilirubin conjugated increased [Recovered/Resolved]
  - Blood bilirubin unconjugated increased [Recovered/Resolved]

NARRATIVE: CASE EVENT DATE: 20171230
